FAERS Safety Report 5587997-1 (Version None)
Quarter: 2008Q1

REPORT INFORMATION
  Report Type: 
  Country: None (occurrence: None)
  Receive Date: 20080109
  Receipt Date: 20080109
  Transmission Date: 20080703
  Serious: Yes (Other)
  Sender: FDA-Public Use
  Company Number: None

PATIENT
  Sex: Male
  Weight: 113.3993 kg

DRUGS (1)
  1. NOVOLOG [Suspect]
     Indication: DIABETES MELLITUS
     Dosage: 10 UNITS WITH MEALS SQ
     Route: 058
     Dates: start: 20071218, end: 20080102

REACTIONS (2)
  - DYSPNOEA [None]
  - WEIGHT INCREASED [None]
